FAERS Safety Report 19702634 (Version 1)
Quarter: 2021Q3

REPORT INFORMATION
  Report Type: Other
  Country: LB (occurrence: LB)
  Receive Date: 20210815
  Receipt Date: 20210815
  Transmission Date: 20211014
  Serious: Yes (Other)
  Sender: FDA-Public Use
  Company Number: LB-ROCHE-2863708

PATIENT
  Age: 40 Year
  Sex: Male

DRUGS (3)
  1. LUCENTIS [Suspect]
     Active Substance: RANIBIZUMAB
     Indication: DIABETIC RETINAL OEDEMA
     Dosage: UNK
     Route: 031
     Dates: start: 20210127
  2. COUMADIN [Concomitant]
     Active Substance: WARFARIN SODIUM
     Indication: ANTICOAGULANT THERAPY
     Dosage: UNK
     Route: 065
  3. HEPARIN SODIUM. [Concomitant]
     Active Substance: HEPARIN SODIUM
     Indication: ANTICOAGULANT THERAPY
     Dosage: UNK
     Route: 065

REACTIONS (7)
  - Headache [Recovered/Resolved]
  - Chest pain [Recovered/Resolved]
  - Blindness [Not Recovered/Not Resolved]
  - Vision blurred [Unknown]
  - Retinal haemorrhage [Recovering/Resolving]
  - Cerebrovascular accident [Unknown]
  - Arthralgia [Unknown]

NARRATIVE: CASE EVENT DATE: 20210312
